FAERS Safety Report 4881915-7 (Version None)
Quarter: 2006Q1

REPORT INFORMATION
  Report Type: 
  Country: None (occurrence: None)
  Receive Date: 20060112
  Receipt Date: 20060104
  Transmission Date: 20060701
  Serious: No
  Sender: FDA-Public Use
  Company Number: 236404K05USA

PATIENT
  Age: 47 Year
  Sex: Female
  Weight: 56.6996 kg

DRUGS (3)
  1. REBIF [Suspect]
     Indication: MULTIPLE SCLEROSIS
     Dosage: 44 MCG, 3 IN 1 WEEKS, SUBCUTANEOUS
     Route: 058
     Dates: start: 20040708
  2. CLONAZEPAM [Concomitant]
  3. NEURONTIN [Concomitant]

REACTIONS (5)
  - COLD SWEAT [None]
  - CONVULSION [None]
  - EPISTAXIS [None]
  - PYREXIA [None]
  - TREMOR [None]
